FAERS Safety Report 12507103 (Version 1)
Quarter: 2016Q2

REPORT INFORMATION
  Report Type: Spontaneous
  Country: US (occurrence: US)
  Receive Date: 20160629
  Receipt Date: 20160629
  Transmission Date: 20160815
  Serious: No
  Sender: FDA-Public Use
  Company Number: US-TEVA-625571USA

PATIENT
  Sex: Male
  Weight: 70.37 kg

DRUGS (2)
  1. SIMVASTATIN. [Suspect]
     Active Substance: SIMVASTATIN
     Indication: BLOOD PRESSURE ABNORMAL
     Route: 065
     Dates: end: 201501
  2. LISINOPRIL. [Suspect]
     Active Substance: LISINOPRIL
     Dates: start: 201301, end: 201501

REACTIONS (3)
  - Dizziness [Unknown]
  - Hypotension [Unknown]
  - Product use issue [Recovered/Resolved]
